FAERS Safety Report 8844382 (Version 9)
Quarter: 2014Q4

REPORT INFORMATION
  Report Type: Report from Study
  Country: DE (occurrence: DE)
  Receive Date: 20121017
  Receipt Date: 20141026
  Transmission Date: 20150529
  Serious: Yes (Hospitalization, Other)
  Sender: FDA-Public Use
  Company Number: PHHY2012DE091691

PATIENT
  Age: 25 Year
  Sex: Female

DRUGS (2)
  1. EXTAVIA [Suspect]
     Active Substance: INTERFERON BETA-1B
     Dosage: 1 ML (250 UG/ML), QOD
     Route: 058
     Dates: start: 20121024
  2. EXTAVIA [Suspect]
     Active Substance: INTERFERON BETA-1B
     Indication: MULTIPLE SCLEROSIS
     Dosage: 1 ML (250 UG/ML) QOD
     Route: 058
     Dates: start: 20120515

REACTIONS (12)
  - Application site folliculitis [Recovered/Resolved]
  - Multiple sclerosis relapse [Recovered/Resolved]
  - Central nervous system lesion [Unknown]
  - Writer^s cramp [Recovered/Resolved]
  - Fatigue [Unknown]
  - Purulent discharge [Recovered/Resolved]
  - Oral herpes [Recovered/Resolved]
  - Influenza like illness [Not Recovered/Not Resolved]
  - Muscle spasms [Recovered/Resolved]
  - Hypoaesthesia [Recovered/Resolved]
  - Sinusitis [Recovered/Resolved]
  - Lip blister [Recovered/Resolved]

NARRATIVE: CASE EVENT DATE: 20121011
